FAERS Safety Report 5290743-2 (Version None)
Quarter: 2007Q2

REPORT INFORMATION
  Report Type: 
  Country: None (occurrence: None)
  Receive Date: 20070409
  Receipt Date: 20070405
  Transmission Date: 20071010
  Serious: Yes (Life-Threatening, Hospitalization)
  Sender: FDA-Public Use
  Company Number: HQWYE874315MAR07

PATIENT
  Sex: Female

DRUGS (9)
  1. AMIODARONE HCL [Suspect]
     Indication: VENTRICULAR TACHYCARDIA
     Route: 048
     Dates: start: 20051018, end: 20070301
  2. AMIODARONE HCL [Suspect]
     Indication: HYPERTROPHIC CARDIOMYOPATHY
  3. MICARDIS [Concomitant]
     Indication: HYPERTENSION
     Route: 048
     Dates: start: 20050621, end: 20070301
  4. MARZULENE S [Concomitant]
     Indication: GASTRITIS
     Route: 048
     Dates: start: 20040308, end: 20070301
  5. ALDACTAZIDE [Concomitant]
     Indication: CARDIAC FAILURE CHRONIC
     Route: 048
     Dates: start: 20050823, end: 20070301
  6. URSO [Concomitant]
     Indication: CHOLELITHIASIS
     Route: 048
     Dates: start: 20040308, end: 20070301
  7. DEPAS [Concomitant]
     Indication: ANXIETY DISORDER
     Route: 048
     Dates: start: 20040308, end: 20070301
  8. AMLODIN [Concomitant]
     Indication: HYPERTENSION
     Route: 048
     Dates: start: 20040308, end: 20070301
  9. TOWAMIN [Concomitant]
     Indication: HYPERTENSION
     Route: 048
     Dates: start: 20040308, end: 20070301

REACTIONS (2)
  - HEPATIC FUNCTION ABNORMAL [None]
  - NODAL RHYTHM [None]
